FAERS Safety Report 23171607 (Version 1)
Quarter: 2023Q4

REPORT INFORMATION
  Report Type: Spontaneous
  Country: TH (occurrence: TH)
  Receive Date: 20231110
  Receipt Date: 20231110
  Transmission Date: 20240110
  Serious: Yes (Other)
  Sender: FDA-Public Use
  Company Number: TH-MYLANLABS-2023M1112709

PATIENT
  Age: 58 Year
  Sex: Female

DRUGS (3)
  1. PHENYTOIN [Interacting]
     Active Substance: PHENYTOIN
     Indication: Seizure prophylaxis
     Dosage: 800 MILLIGRAM; LOADING DOSE
     Route: 065
  2. PHENYTOIN [Interacting]
     Active Substance: PHENYTOIN
     Dosage: 300 MILLIGRAM, QD
     Route: 065
  3. OMEPRAZOLE [Suspect]
     Active Substance: OMEPRAZOLE
     Indication: Product used for unknown indication
     Dosage: UNK
     Route: 065

REACTIONS (2)
  - Toxicity to various agents [Recovering/Resolving]
  - Labelled drug-drug interaction medication error [Recovering/Resolving]
